FAERS Safety Report 25283786 (Version 1)
Quarter: 2025Q2

REPORT INFORMATION
  Report Type: Spontaneous
  Country: GR (occurrence: GR)
  Receive Date: 20250508
  Receipt Date: 20250508
  Transmission Date: 20250716
  Serious: Yes (Other)
  Sender: MYLAN
  Company Number: GR-UCBSA-2025024299

PATIENT
  Age: 17 Year

DRUGS (32)
  1. LEVETIRACETAM [Suspect]
     Active Substance: LEVETIRACETAM
     Indication: Seizure
  2. LEVETIRACETAM [Suspect]
     Active Substance: LEVETIRACETAM
     Route: 065
  3. LEVETIRACETAM [Suspect]
     Active Substance: LEVETIRACETAM
     Route: 065
  4. LEVETIRACETAM [Suspect]
     Active Substance: LEVETIRACETAM
  5. TOPIRAMATE [Suspect]
     Active Substance: TOPIRAMATE
     Indication: Seizure
  6. TOPIRAMATE [Suspect]
     Active Substance: TOPIRAMATE
     Route: 065
  7. TOPIRAMATE [Suspect]
     Active Substance: TOPIRAMATE
     Route: 065
  8. TOPIRAMATE [Suspect]
     Active Substance: TOPIRAMATE
  9. LAMOTRIGINE [Suspect]
     Active Substance: LAMOTRIGINE
     Indication: Seizure
  10. LAMOTRIGINE [Suspect]
     Active Substance: LAMOTRIGINE
     Route: 065
  11. LAMOTRIGINE [Suspect]
     Active Substance: LAMOTRIGINE
     Route: 065
  12. LAMOTRIGINE [Suspect]
     Active Substance: LAMOTRIGINE
  13. OXCARBAZEPINE [Suspect]
     Active Substance: OXCARBAZEPINE
     Indication: Seizure
  14. OXCARBAZEPINE [Suspect]
     Active Substance: OXCARBAZEPINE
     Route: 065
  15. OXCARBAZEPINE [Suspect]
     Active Substance: OXCARBAZEPINE
     Route: 065
  16. OXCARBAZEPINE [Suspect]
     Active Substance: OXCARBAZEPINE
  17. BRIVARACETAM [Suspect]
     Active Substance: BRIVARACETAM
     Indication: Seizure
  18. BRIVARACETAM [Suspect]
     Active Substance: BRIVARACETAM
     Route: 065
  19. BRIVARACETAM [Suspect]
     Active Substance: BRIVARACETAM
     Route: 065
  20. BRIVARACETAM [Suspect]
     Active Substance: BRIVARACETAM
  21. CLOBAZAM [Suspect]
     Active Substance: CLOBAZAM
     Indication: Seizure
  22. CLOBAZAM [Suspect]
     Active Substance: CLOBAZAM
     Route: 065
  23. CLOBAZAM [Suspect]
     Active Substance: CLOBAZAM
     Route: 065
  24. CLOBAZAM [Suspect]
     Active Substance: CLOBAZAM
  25. VALPROIC ACID [Suspect]
     Active Substance: VALPROIC ACID
     Indication: Seizure
  26. VALPROIC ACID [Suspect]
     Active Substance: VALPROIC ACID
     Route: 065
  27. VALPROIC ACID [Suspect]
     Active Substance: VALPROIC ACID
     Route: 065
  28. VALPROIC ACID [Suspect]
     Active Substance: VALPROIC ACID
  29. PERAMPANEL [Suspect]
     Active Substance: PERAMPANEL
     Indication: Seizure
  30. PERAMPANEL [Suspect]
     Active Substance: PERAMPANEL
     Route: 065
  31. PERAMPANEL [Suspect]
     Active Substance: PERAMPANEL
     Route: 065
  32. PERAMPANEL [Suspect]
     Active Substance: PERAMPANEL

REACTIONS (2)
  - Seizure [Unknown]
  - Multiple-drug resistance [Unknown]
